FAERS Safety Report 6204884-6 (Version None)
Quarter: 2009Q2

REPORT INFORMATION
  Report Type: 
  Country: None (occurrence: None)
  Receive Date: 20090522
  Receipt Date: 20090511
  Transmission Date: 20091009
  Serious: Yes (Hospitalization)
  Sender: FDA-Public Use
  Company Number: 1-18415071

PATIENT
  Age: 18 Month
  Sex: Female

DRUGS (1)
  1. GLYBURIDE [Suspect]
     Indication: OVERDOSE
     Dosage: ORAL
     Route: 048

REACTIONS (13)
  - BLOOD GLUCOSE DECREASED [None]
  - CRYING [None]
  - DEPRESSED LEVEL OF CONSCIOUSNESS [None]
  - HYPERHIDROSIS [None]
  - HYPERINSULINISM [None]
  - INTENTIONAL OVERDOSE [None]
  - LETHARGY [None]
  - MALAISE [None]
  - PAIN [None]
  - SCREAMING [None]
  - TACHYCARDIA [None]
  - TREMOR [None]
  - VOMITING [None]
